FAERS Safety Report 7132932-8 (Version None)
Quarter: 2010Q4

REPORT INFORMATION
  Report Type: 
  Country: None (occurrence: None)
  Receive Date: 20101202
  Receipt Date: 20101129
  Transmission Date: 20110411
  Serious: No
  Sender: FDA-Public Use
  Company Number: US-PFIZER INC-2010159830

PATIENT
  Sex: Female
  Weight: 9.977 kg

DRUGS (1)
  1. ZITHROMAX [Suspect]
     Indication: RESPIRATORY TRACT INFECTION
     Dosage: UNK
     Route: 048
     Dates: start: 20101117, end: 20101121

REACTIONS (1)
  - ALOPECIA [None]
